FAERS Safety Report 9499868 (Version 3)
Quarter: 2013Q4

REPORT INFORMATION
  Report Type: Spontaneous
  Country: US (occurrence: None)
  Receive Date: 20130107
  Receipt Date: 20131226
  Transmission Date: 20140711
  Serious: Yes (Other)
  Sender: FDA-Public Use
  Company Number: PHEH2012US023289

PATIENT
  Age: 57 Year
  Sex: Female

DRUGS (6)
  1. GILENYA [Suspect]
     Indication: MULTIPLE SCLEROSIS
     Route: 048
     Dates: start: 20121119
  2. EFFEXOR (VENLAFAXINE HYDROCHLORIDE) UNKNOWN [Concomitant]
  3. GABAPENTIN (GABAPENTIN) [Concomitant]
  4. IBUPROFEN (IBUPROFEN) [Concomitant]
  5. VITAMIN D (ERGOCALCIFEROL) [Concomitant]
  6. FISH OIL (FISH OIL) [Concomitant]

REACTIONS (7)
  - Urinary tract disorder [None]
  - Chills [None]
  - Abdominal pain [None]
  - Back pain [None]
  - Diarrhoea [None]
  - Constipation [None]
  - Pain [None]
